FAERS Safety Report 13651036 (Version 1)
Quarter: 2017Q2

REPORT INFORMATION
  Report Type: Spontaneous
  Country: BR (occurrence: BR)
  Receive Date: 20170614
  Receipt Date: 20170614
  Transmission Date: 20170830
  Serious: Yes (Other)
  Sender: FDA-Public Use
  Company Number: BR-GLAXOSMITHKLINE-BR2016GSK144065

PATIENT
  Sex: Female
  Weight: 80 kg

DRUGS (1)
  1. BENLYSTA [Suspect]
     Active Substance: BELIMUMAB
     Indication: SYSTEMIC LUPUS ERYTHEMATOSUS
     Dosage: UNK UNK, CYC
     Dates: start: 20160902

REACTIONS (14)
  - Hypertension [Unknown]
  - Inappropriate schedule of drug administration [Recovered/Resolved]
  - Thoracic vertebral fracture [Unknown]
  - Arthralgia [Recovered/Resolved]
  - Thyroid mass [Unknown]
  - Drug dose omission [Recovered/Resolved]
  - Back pain [Unknown]
  - Keratoconus [Unknown]
  - Osteoporosis [Unknown]
  - Dyspnoea [Recovered/Resolved]
  - Stomatitis [Recovered/Resolved]
  - Pain [Recovered/Resolved]
  - Circumstance or information capable of leading to medication error [Not Recovered/Not Resolved]
  - Product availability issue [Unknown]
